FAERS Safety Report 4876352-5 (Version None)
Quarter: 2005Q4

REPORT INFORMATION
  Report Type: 
  Country: None (occurrence: None)
  Receive Date: 20051206
  Receipt Date: 20050914
  Transmission Date: 20060501
  Serious: No
  Sender: FDA-Public Use
  Company Number: USA0508104685

PATIENT
  Age: 53 Year
  Sex: Male

DRUGS (5)
  1. CYMBALTA [Suspect]
     Indication: BACK PAIN
     Dosage: 60 MG
     Dates: start: 20050524, end: 20050608
  2. NORVASC [Concomitant]
  3. NAPROXEN [Concomitant]
  4. FLEXERIL [Concomitant]
  5. SEROQUEL [Concomitant]

REACTIONS (4)
  - FEELING ABNORMAL [None]
  - HEADACHE [None]
  - HYPERTENSION [None]
  - VISION BLURRED [None]
